FAERS Safety Report 23367261 (Version 2)
Quarter: 2024Q1

REPORT INFORMATION
  Report Type: Spontaneous
  Country: FR (occurrence: FR)
  Receive Date: 20240104
  Receipt Date: 20240111
  Transmission Date: 20240410
  Serious: Yes (Life-Threatening, Hospitalization)
  Sender: FDA-Public Use
  Company Number: None

PATIENT
  Age: 79 Year
  Sex: Female
  Weight: 45.7 kg

DRUGS (6)
  1. SOLU-MEDROL [Interacting]
     Active Substance: METHYLPREDNISOLONE SODIUM SUCCINATE
     Indication: Chemotherapy
     Dosage: UNK
  2. BISOPROLOL [Interacting]
     Active Substance: BISOPROLOL\BISOPROLOL FUMARATE
     Indication: Hypertension
     Dosage: 2.5 MG, 1X/DAY
     Dates: start: 20231108
  3. OXALIPLATIN [Suspect]
     Active Substance: OXALIPLATIN
     Indication: Chemotherapy
     Dosage: 1 DF, FREQ:2 WK
     Route: 042
     Dates: start: 20231122, end: 20231122
  4. UMECLIDINIUM BROMIDE\VILANTEROL TRIFENATATE [Concomitant]
     Active Substance: UMECLIDINIUM BROMIDE\VILANTEROL TRIFENATATE
     Indication: Bronchiectasis
     Dosage: 55 UG, 1X/DAY
     Route: 055
  5. PANTOPRAZOLE [Concomitant]
     Active Substance: PANTOPRAZOLE
     Dosage: 20 MG, 1X/DAY
     Route: 048
  6. PEGFILGRASTIM [Concomitant]
     Active Substance: PEGFILGRASTIM
     Indication: Colony stimulating factor therapy
     Route: 042

REACTIONS (6)
  - Bradycardia [Recovered/Resolved]
  - Cardio-respiratory arrest [Recovered/Resolved]
  - Tonic convulsion [Recovered/Resolved]
  - Anaphylactic reaction [Recovered/Resolved]
  - Drug interaction [Recovered/Resolved]
  - Off label use [Unknown]

NARRATIVE: CASE EVENT DATE: 20231122
